FAERS Safety Report 7412202-0 (Version None)
Quarter: 2011Q2

REPORT INFORMATION
  Report Type: 
  Country: None (occurrence: None)
  Receive Date: 20110413
  Receipt Date: 20110331
  Transmission Date: 20111010
  Serious: Yes (Other)
  Sender: FDA-Public Use
  Company Number: HU-ELI_LILLY_AND_COMPANY-HU201102002990

PATIENT
  Age: 51 Year
  Sex: Female

DRUGS (4)
  1. OLANZAPINE [Suspect]
     Indication: SCHIZOPHRENIA
     Dosage: 15 MG, DAILY (1/D)
     Route: 065
     Dates: start: 20080101
  2. BETALOC [Concomitant]
  3. CLOZAPINE [Concomitant]
  4. CIPRALEX [Concomitant]

REACTIONS (3)
  - HAEMATEMESIS [None]
  - SMALL INTESTINE CARCINOMA [None]
  - GASTRIC ULCER [None]
